FAERS Safety Report 8103544-4 (Version None)
Quarter: 2012Q1

REPORT INFORMATION
  Report Type: 
  Country: None (occurrence: None)
  Receive Date: 20120201
  Receipt Date: 20120126
  Transmission Date: 20120608
  Serious: Yes (Hospitalization)
  Sender: FDA-Public Use
  Company Number: GB-ROCHE-1033901

PATIENT
  Sex: Female
  Weight: 63 kg

DRUGS (2)
  1. METHOTREXATE [Concomitant]
     Route: 065
     Dates: start: 20110610
  2. MABTHERA [Suspect]
     Indication: RHEUMATOID ARTHRITIS
     Route: 065
     Dates: start: 20090914

REACTIONS (1)
  - MYOCARDIAL INFARCTION [None]
